FAERS Safety Report 19887547 (Version 3)
Quarter: 2022Q1

REPORT INFORMATION
  Report Type: Spontaneous
  Country: US (occurrence: US)
  Receive Date: 20210928
  Receipt Date: 20220331
  Transmission Date: 20220423
  Serious: Yes (Other)
  Sender: FDA-Public Use
  Company Number: US-CELLTRION INC.-2021US004053

PATIENT

DRUGS (1)
  1. INFLECTRA [Suspect]
     Active Substance: INFLIXIMAB-DYYB
     Indication: Product used for unknown indication
     Route: 065

REACTIONS (5)
  - Fistula [Unknown]
  - Unevaluable event [Unknown]
  - Product dose omission issue [Unknown]
  - Therapy interrupted [Unknown]
  - Treatment delayed [Unknown]
